FAERS Safety Report 7507416-5 (Version None)
Quarter: 2011Q2

REPORT INFORMATION
  Report Type: 
  Country: None (occurrence: None)
  Receive Date: 20110526
  Receipt Date: 20110517
  Transmission Date: 20111010
  Serious: Yes (Hospitalization)
  Sender: FDA-Public Use
  Company Number: US-ELI_LILLY_AND_COMPANY-US201104007926

PATIENT
  Sex: Female

DRUGS (3)
  1. EVISTA [Suspect]
     Dosage: UNK
     Dates: start: 19960101
  2. ASPIRIN [Concomitant]
     Indication: PROPHYLAXIS
     Dosage: 81 MG, QD
  3. ALLERGY MEDICATION [Concomitant]
     Dosage: UNK

REACTIONS (7)
  - RHINITIS ALLERGIC [None]
  - RHINITIS [None]
  - SECRETION DISCHARGE [None]
  - ASTHMA [None]
  - DRUG HYPERSENSITIVITY [None]
  - RASH [None]
  - NASAL POLYPS [None]
